FAERS Safety Report 4955097-7 (Version None)
Quarter: 2006Q1

REPORT INFORMATION
  Report Type: 
  Country: None (occurrence: None)
  Receive Date: 20060322
  Receipt Date: 20060228
  Transmission Date: 20060701
  Serious: Yes (Disabling, Other)
  Sender: FDA-Public Use
  Company Number: US_010361025

PATIENT
  Age: 71 Year
  Sex: Female
  Weight: 137.6 kg

DRUGS (16)
  1. HUMALOG [Suspect]
     Indication: DIABETES MELLITUS
     Dosage: 40 U, 3/D, SUBCUTANEOUS
     Route: 058
     Dates: start: 20010131
  2. HUMULIN (HUMAN INSULIN (RDNA ORIGIN) ULTRALENTE) VIAL [Suspect]
     Indication: DIABETES MELLITUS
     Dosage: 80 U, 2/D, SUBCUTANEOUS
     Route: 058
     Dates: start: 20010101, end: 20030901
  3. HUMULIN (HUMAN INSULIN (RDNA ORIGIN) 30% REGULAR, 70% NPH) PEN, DISPOS [Suspect]
     Indication: DIABETES MELLITUS
     Dosage: SUBCUTANEOUS
     Route: 058
     Dates: start: 20010131, end: 20010413
  4. EXENATIDE (EXENATIDE) [Concomitant]
  5. PREDNISONE TAB [Concomitant]
  6. GLUCOPHAGE [Concomitant]
  7. GLUCOTROL XL [Concomitant]
  8. PURINETHOL [Concomitant]
  9. REGRANEX [Concomitant]
  10. ASACOL [Concomitant]
  11. ACTONEL [Concomitant]
  12. PEPCID [Concomitant]
  13. GLUCOVANCE [Concomitant]
  14. LANTUS [Concomitant]
  15. ACTOS [Concomitant]
  16. ENBREL [Concomitant]

REACTIONS (26)
  - BLOOD GLUCOSE DECREASED [None]
  - BLOOD GLUCOSE INCREASED [None]
  - BODY HEIGHT DECREASED [None]
  - CATARACT [None]
  - COLITIS ULCERATIVE [None]
  - DIFFICULTY IN WALKING [None]
  - DISEASE RECURRENCE [None]
  - DRUG INEFFECTIVE [None]
  - DYSSTASIA [None]
  - HERPES ZOSTER [None]
  - INJECTION SITE BRUISING [None]
  - INJECTION SITE PAIN [None]
  - INSULIN RESISTANCE [None]
  - LIPOHYPERTROPHY [None]
  - OEDEMA PERIPHERAL [None]
  - OSTEOPOROSIS [None]
  - PHARMACEUTICAL PRODUCT COMPLAINT [None]
  - PITUITARY-DEPENDENT CUSHING'S SYNDROME [None]
  - POOR QUALITY DRUG ADMINISTERED [None]
  - PURULENT DISCHARGE [None]
  - PYREXIA [None]
  - SPINAL FRACTURE [None]
  - TREATMENT NONCOMPLIANCE [None]
  - UPPER LIMB FRACTURE [None]
  - VASCULAR INJURY [None]
  - WEIGHT INCREASED [None]
